FAERS Safety Report 18143024 (Version 1)
Quarter: 2020Q3

REPORT INFORMATION
  Report Type: Spontaneous
  Country: NO (occurrence: NO)
  Receive Date: 20200813
  Receipt Date: 20200813
  Transmission Date: 20201103
  Serious: Yes (Death)
  Sender: FDA-Public Use
  Company Number: NO-LEO PHARMA-330937

PATIENT
  Age: 60 Year
  Sex: Male

DRUGS (1)
  1. PICATO [Suspect]
     Active Substance: INGENOL MEBUTATE
     Indication: ACTINIC KERATOSIS
     Dates: start: 20150213, end: 20150215

REACTIONS (2)
  - Metastasis [Fatal]
  - Neuroendocrine carcinoma of the skin [Fatal]

NARRATIVE: CASE EVENT DATE: 20150418
